FAERS Safety Report 6245554-8 (Version None)
Quarter: 2009Q2

REPORT INFORMATION
  Report Type: 
  Country: None (occurrence: None)
  Receive Date: 20090619
  Receipt Date: 20090408
  Transmission Date: 20091009
  Serious: No
  Sender: FDA-Public Use
  Company Number: ALL1-2009-00937

PATIENT
  Age: 45 Year
  Sex: Female
  Weight: 52.2 kg

DRUGS (3)
  1. VYVANSE [Suspect]
     Indication: ATTENTION DEFICIT/HYPERACTIVITY DISORDER
     Dosage: 30 MG, 1X/DAY:QD, ORAL : 40 MG, 1X/DAY:QD, ORAL
     Route: 048
     Dates: start: 20080101, end: 20090201
  2. VYVANSE [Suspect]
     Indication: ATTENTION DEFICIT/HYPERACTIVITY DISORDER
     Dosage: 30 MG, 1X/DAY:QD, ORAL : 40 MG, 1X/DAY:QD, ORAL
     Route: 048
     Dates: start: 20090201
  3. WELLBUTRIN XL [Concomitant]

REACTIONS (2)
  - DRUG DIVERSION [None]
  - DRUG INEFFECTIVE [None]
